FAERS Safety Report 22147766 (Version 2)
Quarter: 2023Q1

REPORT INFORMATION
  Report Type: Spontaneous
  Country: US (occurrence: US)
  Receive Date: 20230328
  Receipt Date: 20230331
  Transmission Date: 20230417
  Serious: No
  Sender: FDA-Public Use
  Company Number: US-002147023-NVSC2023US067320

PATIENT
  Sex: Female

DRUGS (1)
  1. TOBRAMYCIN [Suspect]
     Active Substance: TOBRAMYCIN
     Indication: Product used for unknown indication
     Dosage: 0.3 %
     Route: 065

REACTIONS (4)
  - Eyelid irritation [Unknown]
  - Eyelid exfoliation [Unknown]
  - Photophobia [Unknown]
  - Erythema [Unknown]
